FAERS Safety Report 20257482 (Version 1)
Quarter: 2021Q4

REPORT INFORMATION
  Report Type: Spontaneous
  Country: US (occurrence: None)
  Receive Date: 20211230
  Receipt Date: 20211230
  Transmission Date: 20220303
  Serious: Yes (Other)
  Sender: FDA-Public Use
  Company Number: None

PATIENT
  Age: 70 Year
  Sex: Female
  Weight: 57.72 kg

DRUGS (1)
  1. TYMLOS [Suspect]
     Active Substance: ABALOPARATIDE
     Indication: Osteoporotic fracture
     Dosage: FREQUENCY : DAILY;?
     Route: 058
     Dates: start: 20211108, end: 20211230

REACTIONS (2)
  - Haematochezia [None]
  - Blood pressure increased [None]

NARRATIVE: CASE EVENT DATE: 20211230
